FAERS Safety Report 15200446 (Version 10)
Quarter: 2021Q2

REPORT INFORMATION
  Report Type: Other
  Country: DE (occurrence: DE)
  Receive Date: 20180726
  Receipt Date: 20210419
  Transmission Date: 20210716
  Serious: Yes (Hospitalization, Other)
  Sender: FDA-Public Use
  Company Number: DE-ROCHE-2126614

PATIENT
  Age: 41 Year
  Sex: Female
  Weight: 54 kg

DRUGS (16)
  1. TIZANIDIN [Concomitant]
     Active Substance: TIZANIDINE HYDROCHLORIDE
  2. RITUXIMAB. [Concomitant]
     Active Substance: RITUXIMAB
     Indication: MULTIPLE SCLEROSIS
  3. BUDENOFALK [Concomitant]
     Active Substance: BUDESONIDE
  4. CBD OIL [Concomitant]
     Active Substance: CANNABIDIOL\HERBALS
     Dosage: 3?0?3
  5. RITUXIMAB. [Concomitant]
     Active Substance: RITUXIMAB
     Indication: RHEUMATOID ARTHRITIS
     Dosage: SUBSEQUENT DOSES: 31/JAN/2019, 01/APR/2019
     Route: 041
     Dates: start: 20181031
  6. VITAMIN B COMPLEX [Concomitant]
     Active Substance: CYANOCOBALAMIN\DEXPANTHENOL\NIACINAMIDE\PYRIDOXINE HYDROCHLORIDE\RIBOFLAVIN 5^-PHOSPHATE SODIUM\THIAMINE HYDROCHLORIDE\VITAMIN B COMPLEX
  7. L?THYROXIN [Concomitant]
     Active Substance: LEVOTHYROXINE SODIUM
  8. PANTOPRAZOL [Concomitant]
     Active Substance: PANTOPRAZOLE SODIUM
     Dosage: 1?2 PER 1 DAY
  9. NOVAMINSULFON [Concomitant]
     Active Substance: METAMIZOLE
  10. OCREVUS [Suspect]
     Active Substance: OCRELIZUMAB
     Indication: PRIMARY PROGRESSIVE MULTIPLE SCLEROSIS
     Dosage: ONCE
     Route: 042
     Dates: start: 20180507, end: 20180507
  11. OCREVUS [Suspect]
     Active Substance: OCRELIZUMAB
     Indication: RELAPSING-REMITTING MULTIPLE SCLEROSIS
     Dosage: ONCE
     Route: 042
     Dates: start: 20180423, end: 20180614
  12. MAGNESIUM CITRATE. [Concomitant]
     Active Substance: MAGNESIUM CITRATE
  13. FOLIC ACID. [Concomitant]
     Active Substance: FOLIC ACID
  14. FENISTIL [Concomitant]
     Active Substance: DIMETHINDENE
  15. CBD OIL [Concomitant]
     Active Substance: CANNABIDIOL\HERBALS
     Dosage: 1?0?0
  16. MICTONORM [Concomitant]
     Active Substance: PROPIVERINE HYDROCHLORIDE
     Dosage: 1?0?0

REACTIONS (21)
  - Cystitis [Recovered/Resolved]
  - Oral candidiasis [Recovered/Resolved]
  - Influenza like illness [Recovering/Resolving]
  - Fatigue [Recovered/Resolved]
  - Weight decreased [Recovered/Resolved]
  - Cytokine storm [Unknown]
  - Skin burning sensation [Recovering/Resolving]
  - Cardiac disorder [Recovered/Resolved]
  - Nasal oedema [Unknown]
  - Inflammatory marker increased [Not Recovered/Not Resolved]
  - Urinary tract infection [Not Recovered/Not Resolved]
  - Headache [Recovered/Resolved]
  - Hypoaesthesia [Unknown]
  - Pain of skin [Recovering/Resolving]
  - Tachycardia [Recovering/Resolving]
  - Multiple sclerosis relapse [Not Recovered/Not Resolved]
  - Pruritus [Recovered/Resolved]
  - Arrhythmia [Recovering/Resolving]
  - Erythema [Recovered/Resolved]
  - B-lymphocyte count decreased [Recovered/Resolved]
  - Pain in extremity [Recovered/Resolved]

NARRATIVE: CASE EVENT DATE: 20180423
